FAERS Safety Report 4886934-2 (Version None)
Quarter: 2006Q1

REPORT INFORMATION
  Report Type: 
  Country: None (occurrence: None)
  Receive Date: 20060118
  Receipt Date: 20060110
  Transmission Date: 20060701
  Serious: Yes (Death)
  Sender: FDA-Public Use
  Company Number: 200610225BWH

PATIENT
  Age: 85 Year
  Sex: Female

DRUGS (3)
  1. TRASYLOL [Suspect]
     Dosage: 1 + 20 ML, ONCE, INTRAVENOUS
     Route: 042
     Dates: start: 20060106
  2. TRASYLOL [Suspect]
     Dosage: 1 + 20 ML, ONCE, INTRAVENOUS
     Route: 042
     Dates: start: 20060106
  3. HEPARIN [Concomitant]

REACTIONS (5)
  - AORTIC THROMBOSIS [None]
  - PROCEDURAL COMPLICATION [None]
  - PROTEIN C DEFICIENCY [None]
  - PROTEIN S DEFICIENCY [None]
  - RIGHT VENTRICULAR FAILURE [None]
